FAERS Safety Report 24781496 (Version 1)
Quarter: 2024Q4

REPORT INFORMATION
  Report Type: Spontaneous
  Country: US (occurrence: US)
  Receive Date: 20241227
  Receipt Date: 20241227
  Transmission Date: 20250114
  Serious: Yes (Other)
  Sender: AMGEN
  Company Number: US-AMGEN-USASP2024251649

PATIENT
  Age: 77 Year
  Sex: Female

DRUGS (2)
  1. TEPEZZA [Suspect]
     Active Substance: TEPROTUMUMAB-TRBW
     Indication: Toxic goitre
     Dosage: 830 MILLIGRAM, Q3WK WEEK 0:830MG PIV X1 DOSE
     Route: 040
     Dates: start: 20240801
  2. TEPEZZA [Suspect]
     Active Substance: TEPROTUMUMAB-TRBW
     Dosage: 1660 MILLIGRAM, Q3WK WEEK 3: 1660MG PIV Q3WK X 7 DOSES
     Route: 040
     Dates: start: 2024, end: 20241219

REACTIONS (1)
  - Deafness [Not Recovered/Not Resolved]

NARRATIVE: CASE EVENT DATE: 20240101
